FAERS Safety Report 21150895 (Version 2)
Quarter: 2022Q3

REPORT INFORMATION
  Report Type: Spontaneous
  Country: HR (occurrence: HR)
  Receive Date: 20220729
  Receipt Date: 20220811
  Transmission Date: 20221026
  Serious: Yes (Other)
  Sender: FDA-Public Use
  Company Number: HR-009507513-2207HRV007453

PATIENT
  Age: 59 Year
  Sex: Female

DRUGS (3)
  1. LETERMOVIR [Suspect]
     Active Substance: LETERMOVIR
     Indication: Antiviral prophylaxis
     Dosage: 120 MILLIGRAM, ONCE DAILY
     Route: 048
  2. LETERMOVIR [Suspect]
     Active Substance: LETERMOVIR
     Indication: Prophylaxis
     Dosage: 120 MILLIGRAM, ONCE DAILY
     Route: 048
  3. UNSPECIFIED INGREDIENT [Concomitant]
     Active Substance: UNSPECIFIED INGREDIENT
     Indication: Pulmonary embolism
     Dosage: UNK

REACTIONS (3)
  - Cytomegalovirus infection reactivation [Recovered/Resolved]
  - Treatment failure [Unknown]
  - Off label use [Unknown]
